FAERS Safety Report 5794704-6 (Version None)
Quarter: 2008Q2

REPORT INFORMATION
  Report Type: 
  Country: None (occurrence: None)
  Receive Date: 20080630
  Receipt Date: 20080619
  Transmission Date: 20081010
  Serious: Yes (Other)
  Sender: FDA-Public Use
  Company Number: US-MERCK-0803USA04097

PATIENT
  Age: 50 Year
  Sex: Female
  Weight: 108 kg

DRUGS (7)
  1. JANUVIA [Suspect]
     Indication: DIABETES MELLITUS
     Route: 048
     Dates: start: 20080113, end: 20080321
  2. LEVOTHROID [Concomitant]
     Route: 065
  3. LISINOPRIL [Concomitant]
     Route: 048
  4. GLUCOPHAGE [Concomitant]
     Route: 065
  5. MACROBID [Concomitant]
     Route: 065
  6. SYNTHROID [Concomitant]
     Route: 065
  7. METFORMIN [Concomitant]
     Route: 065

REACTIONS (11)
  - ASTHENIA [None]
  - BALANCE DISORDER [None]
  - DIZZINESS POSTURAL [None]
  - FEELING ABNORMAL [None]
  - GAIT DISTURBANCE [None]
  - HEADACHE [None]
  - IMPAIRED DRIVING ABILITY [None]
  - LIMB DISCOMFORT [None]
  - MENTAL IMPAIRMENT [None]
  - PRURITUS [None]
  - THINKING ABNORMAL [None]
